FAERS Safety Report 16641401 (Version 1)
Quarter: 2019Q3

REPORT INFORMATION
  Report Type: Spontaneous
  Country: CN (occurrence: CN)
  Receive Date: 20190729
  Receipt Date: 20190729
  Transmission Date: 20191004
  Serious: Yes (Death, Hospitalization)
  Sender: FDA-Public Use
  Company Number: CN-SCIEGEN PHARMACEUTICALS INC-2019SCILIT00221

PATIENT
  Age: 79 Year
  Sex: Male

DRUGS (3)
  1. CLOPIDOGREL [Suspect]
     Active Substance: CLOPIDOGREL BISULFATE
  2. AMBROXOL HYDROCHLORIDE [Concomitant]
     Active Substance: AMBROXOL HYDROCHLORIDE
  3. CPZ/SAM (CEFOPERAZONE/SULBACTAM) [Interacting]
     Active Substance: CEFOPERAZONE\SULBACTAM

REACTIONS (5)
  - Cerebral haemorrhage [Unknown]
  - Cerebral infarction [Unknown]
  - Drug interaction [Unknown]
  - Coagulopathy [Fatal]
  - Paralysis [Unknown]
